FAERS Safety Report 20474595 (Version 1)
Quarter: 2022Q1

REPORT INFORMATION
  Report Type: Spontaneous
  Country: US (occurrence: None)
  Receive Date: 20220214
  Receipt Date: 20220214
  Transmission Date: 20220423
  Serious: Yes (Other)
  Sender: FDA-Public Use
  Company Number: None

PATIENT
  Age: 70 Year
  Sex: Male

DRUGS (1)
  1. ZYTIGA [Suspect]
     Active Substance: ABIRATERONE ACETATE
     Indication: Prostate cancer
     Dosage: FREQUENCY : DAILY;?
     Route: 048

REACTIONS (10)
  - Lethargy [None]
  - Fatigue [None]
  - Fluid retention [None]
  - Dyspnoea exertional [None]
  - Sleep apnoea syndrome [None]
  - Non-24-hour sleep-wake disorder [None]
  - Sleep disorder [None]
  - Muscular weakness [None]
  - Dysstasia [None]
  - Gait disturbance [None]

NARRATIVE: CASE EVENT DATE: 20220101
